FAERS Safety Report 8887575 (Version 2)
Quarter: 2012Q4

REPORT INFORMATION
  Report Type: 
  Country: US (occurrence: None)
  Receive Date: 20121106
  Receipt Date: 20121115
  Transmission Date: 20130627
  Serious: Yes (Disabling)
  Sender: FDA-Public Use
  Company Number: None

PATIENT
  Sex: Female
  Weight: 65.77 kg

DRUGS (3)
  1. STEROID (NOS) [Suspect]
     Indication: INTRA-OCULAR INJECTION
  2. AVASTIN [Suspect]
  3. TRIAMCINOLONE [Suspect]

REACTIONS (7)
  - Eye discharge [None]
  - Eye pain [None]
  - Headache [None]
  - Neck pain [None]
  - Dizziness [None]
  - Musculoskeletal pain [None]
  - Blindness [None]
